FAERS Safety Report 7118355-6 (Version None)
Quarter: 2010Q4

REPORT INFORMATION
  Report Type: 
  Country: None (occurrence: None)
  Receive Date: 20101123
  Receipt Date: 20101118
  Transmission Date: 20110411
  Serious: Yes (Death, Hospitalization)
  Sender: FDA-Public Use
  Company Number: US-BAYER-201022704NA

PATIENT
  Age: 73 Year
  Sex: Female

DRUGS (15)
  1. NEXAVAR [Suspect]
     Indication: HEPATIC NEOPLASM MALIGNANT NON-RESECTABLE
     Route: 048
     Dates: start: 20100415, end: 20100425
  2. NEXAVAR [Suspect]
     Route: 048
     Dates: end: 20100511
  3. OXYCODONE HCL [Concomitant]
  4. ADVAIR DISKUS 100/50 [Concomitant]
     Dosage: 250/50 DAILY
  5. CALCITRIOL [Concomitant]
  6. LISINOPRIL [Concomitant]
     Dates: start: 20091124
  7. PROPRANOLOL [Concomitant]
     Dates: start: 20091124
  8. IMDUR [Concomitant]
  9. LEVOTHYROXINE SODIUM [Concomitant]
  10. PENTASA [Concomitant]
  11. FLUOXETINE [Concomitant]
  12. LACTULOSE [Concomitant]
     Indication: ENCEPHALOPATHY
     Dosage: 4 TEASPOONS
  13. LACTULOSE [Concomitant]
     Dosage: 4 TIMES PER DAY
  14. FERROUS SULFATE [Concomitant]
  15. ACIPHEX [Concomitant]

REACTIONS (2)
  - ENCEPHALOPATHY [None]
  - MULTI-ORGAN FAILURE [None]
